FAERS Safety Report 16770230 (Version 1)
Quarter: 2019Q3

REPORT INFORMATION
  Report Type: Spontaneous
  Country: PT (occurrence: PT)
  Receive Date: 20190904
  Receipt Date: 20190904
  Transmission Date: 20191005
  Serious: Yes (Other)
  Sender: FDA-Public Use
  Company Number: PT-ACCORD-153689

PATIENT
  Age: 73 Year
  Sex: Male

DRUGS (9)
  1. LAMOTRIGINE. [Concomitant]
     Active Substance: LAMOTRIGINE
     Indication: AFFECTIVE DISORDER
     Dosage: AT BREAKFAST
  2. CYAMEMAZINE/CYAMEMAZINE TARTRATE [Concomitant]
  3. QUETIAPINE. [Suspect]
     Active Substance: QUETIAPINE
     Indication: BIPOLAR DISORDER
     Dates: start: 2018, end: 2018
  4. QUETIAPINE. [Suspect]
     Active Substance: QUETIAPINE
     Indication: BIPOLAR DISORDER
     Dosage: SLOW RELEASE AT BEDTIME
  5. BROMAZEPAM [Concomitant]
     Active Substance: BROMAZEPAM
     Indication: BIPOLAR DISORDER
     Dosage: AT BREAKFAST
  6. QUETIAPINE. [Suspect]
     Active Substance: QUETIAPINE
     Indication: BIPOLAR DISORDER
  7. QUETIAPINE. [Suspect]
     Active Substance: QUETIAPINE
     Indication: BIPOLAR DISORDER
     Dosage: AT BEDTIME
  8. BROMAZEPAM [Concomitant]
     Active Substance: BROMAZEPAM
     Indication: BIPOLAR DISORDER
     Dosage: AT DINNER
  9. BROMAZEPAM [Concomitant]
     Active Substance: BROMAZEPAM
     Indication: BIPOLAR DISORDER
     Dosage: AT LUNCH

REACTIONS (4)
  - Akathisia [Recovering/Resolving]
  - Emotional distress [Recovering/Resolving]
  - Loss of personal independence in daily activities [Recovering/Resolving]
  - Restlessness [Recovering/Resolving]

NARRATIVE: CASE EVENT DATE: 2018
